FAERS Safety Report 8477370-0 (Version None)
Quarter: 2012Q2

REPORT INFORMATION
  Report Type: 
  Country: None (occurrence: None)
  Receive Date: 20120629
  Receipt Date: 20120626
  Transmission Date: 20120825
  Serious: Yes (Hospitalization)
  Sender: FDA-Public Use
  Company Number: FR-BAYER-2012-063902

PATIENT
  Age: 88 Year
  Sex: Male

DRUGS (7)
  1. CIPROFLOXACIN HYDROCHLORIDE [Suspect]
     Indication: PRODUCT USED FOR UNKNOWN INDICATION
     Dosage: 1 DF, BID
     Route: 048
     Dates: start: 20120413
  2. ATARAX [Suspect]
     Indication: PRODUCT USED FOR UNKNOWN INDICATION
     Dosage: 25 MG, UNK
     Route: 048
     Dates: start: 20120411
  3. ALLOPURINOL [Concomitant]
  4. ADANCOR [Concomitant]
  5. KARDEGIC [Concomitant]
  6. SPIRONOLACTONE [Concomitant]
  7. POTASSIUM GLUCONATE TAB [Concomitant]

REACTIONS (6)
  - AMNESIA [None]
  - CONFUSIONAL STATE [None]
  - DISORIENTATION [None]
  - SUICIDAL IDEATION [None]
  - AGGRESSION [None]
  - SLEEP DISORDER [None]
